FAERS Safety Report 14612742 (Version 7)
Quarter: 2018Q4

REPORT INFORMATION
  Report Type: Report from Study
  Country: GB (occurrence: GB)
  Receive Date: 20180308
  Receipt Date: 20181127
  Transmission Date: 20190204
  Serious: Yes (Other)
  Sender: FDA-Public Use
  Company Number: GB-JNJFOC-20180304199

PATIENT
  Age: 73 Year
  Sex: Male
  Weight: 105.4 kg

DRUGS (2)
  1. IMBRUVICA [Suspect]
     Active Substance: IBRUTINIB
     Indication: CHRONIC LYMPHOCYTIC LEUKAEMIA
     Route: 048
     Dates: start: 20170627, end: 20180301
  2. RITUXIMAB. [Suspect]
     Active Substance: RITUXIMAB
     Indication: CHRONIC LYMPHOCYTIC LEUKAEMIA
     Route: 042
     Dates: start: 20170628, end: 20171115

REACTIONS (2)
  - Haematotympanum [Recovered/Resolved with Sequelae]
  - Hepatitis E [Recovered/Resolved with Sequelae]

NARRATIVE: CASE EVENT DATE: 201801
